FAERS Safety Report 4570642-1 (Version None)
Quarter: 2005Q1

REPORT INFORMATION
  Report Type: 
  Country: None (occurrence: None)
  Receive Date: 20050202
  Receipt Date: 20041028
  Transmission Date: 20050727
  Serious: Yes (Hospitalization, Disabling)
  Sender: FDA-Public Use
  Company Number: 2005UW00966

PATIENT
  Age: 80 Year
  Sex: 0
  Weight: 87 kg

DRUGS (2)
  1. DURACAINE HYPERBARIC [Suspect]
     Indication: SPINAL ANAESTHESIA
     Dosage: 0.5 % ONCE
     Dates: start: 20041020, end: 20041020
  2. ENALAPRIL MALEATE [Concomitant]

REACTIONS (4)
  - ANAESTHETIC COMPLICATION [None]
  - FAECAL INCONTINENCE [None]
  - HYPERAESTHESIA [None]
  - PARAESTHESIA [None]
